FAERS Safety Report 4277141-5 (Version None)
Quarter: 2004Q1

REPORT INFORMATION
  Report Type: 
  Country: None (occurrence: None)
  Receive Date: 20040120
  Receipt Date: 20040112
  Transmission Date: 20041129
  Serious: Yes (Death, Hospitalization)
  Sender: FDA-Public Use
  Company Number: NZ-JNJFOC-20031104437

PATIENT
  Age: 66 Year
  Sex: Female

DRUGS (6)
  1. RISPERIDONE [Suspect]
     Indication: DRUG USE FOR UNKNOWN INDICATION
     Dosage: 0.5 + 1 + 2 + 4MG, IN 1 DAY
     Dates: start: 20030401, end: 20030701
  2. RISPERIDONE [Suspect]
     Indication: DRUG USE FOR UNKNOWN INDICATION
     Dosage: 0.5 + 1 + 2 + 4MG, IN 1 DAY
     Dates: start: 20030701, end: 20030701
  3. RISPERIDONE [Suspect]
     Indication: DRUG USE FOR UNKNOWN INDICATION
     Dosage: 0.5 + 1 + 2 + 4MG, IN 1 DAY
     Dates: start: 20030801, end: 20030801
  4. RISPERIDONE [Suspect]
     Indication: DRUG USE FOR UNKNOWN INDICATION
     Dosage: 0.5 + 1 + 2 + 4MG, IN 1 DAY
     Dates: start: 20030718, end: 20030803
  5. RISPERIDONE [Suspect]
     Indication: DRUG USE FOR UNKNOWN INDICATION
     Dosage: 0.5 + 1 + 2 + 4MG, IN 1 DAY
     Dates: start: 20030814
  6. ANTIHYPERTENSIVES (UNSPECIFIED)  ANTIHYPERTENSIVES [Concomitant]

REACTIONS (11)
  - APHAGIA [None]
  - BLOOD PRESSURE DECREASED [None]
  - CEREBRAL ARTERY OCCLUSION [None]
  - CEREBROVASCULAR ACCIDENT [None]
  - CIRCULATORY COLLAPSE [None]
  - CONVULSION [None]
  - DIALYSIS [None]
  - DYSPHAGIA [None]
  - REFUSAL OF TREATMENT BY PATIENT [None]
  - RENAL FAILURE ACUTE [None]
  - RHABDOMYOLYSIS [None]
